FAERS Safety Report 12668318 (Version 1)
Quarter: 2016Q3

REPORT INFORMATION
  Report Type: Spontaneous
  Country: VE (occurrence: VE)
  Receive Date: 20160819
  Receipt Date: 20160819
  Transmission Date: 20161109
  Serious: Yes (Life-Threatening)
  Sender: FDA-Public Use
  Company Number: PHHY2016VE113988

PATIENT
  Sex: Female

DRUGS (5)
  1. VITAMIN B6 [Concomitant]
     Active Substance: PYRIDOXINE HYDROCHLORIDE
     Indication: VITAMIN B COMPLEX DEFICIENCY
     Dosage: ON ALTERNATE DAYS, EVERY 1 AND A HALF MONTH OR 40 DAYS, IN 6 DOSES
     Route: 065
  2. ACLASTA [Suspect]
     Active Substance: ZOLEDRONIC ACID
     Indication: ASTHENIA
     Dosage: 5 MG, Q12MO
     Route: 042
     Dates: start: 2015, end: 2015
  3. VITAMIN B-1 [Concomitant]
     Active Substance: THIAMINE
     Indication: VITAMIN B COMPLEX DEFICIENCY
     Dosage: ON ALTERNATE DAYS, EVERY 1 AND A HALF MONTH OR 40 DAYS, IN 6 DOSES
     Route: 065
  4. CALCIBON                           /03134501/ [Concomitant]
     Indication: BONE DISORDER
     Dosage: 1 DF, QD
     Route: 065
  5. VITAMIN B12 [Concomitant]
     Active Substance: CYANOCOBALAMIN
     Indication: VITAMIN B COMPLEX DEFICIENCY
     Dosage: ON ALTERNATE DAYS, EVERY 1 AND A HALF MONTH OR 40 DAYS, IN 6 DOSES
     Route: 065

REACTIONS (8)
  - Malaise [Unknown]
  - Weight decreased [Unknown]
  - Gastric disorder [Unknown]
  - Depressed mood [Unknown]
  - Asthenia [Unknown]
  - Apparent death [Unknown]
  - Gastrointestinal disorder [Unknown]
  - Product use issue [Unknown]

NARRATIVE: CASE EVENT DATE: 2015
